FAERS Safety Report 16893091 (Version 1)
Quarter: 2019Q4

REPORT INFORMATION
  Report Type: Spontaneous
  Country: US (occurrence: US)
  Receive Date: 20191008
  Receipt Date: 20191008
  Transmission Date: 20200122
  Serious: Yes (Other)
  Sender: FDA-Public Use
  Company Number: US-ABBVIE-19K-163-2949640-00

PATIENT
  Sex: Female

DRUGS (2)
  1. PHILLIPS COLON HEALTH [Concomitant]
     Indication: PRODUCT USED FOR UNKNOWN INDICATION
  2. ORILISSA [Suspect]
     Active Substance: ELAGOLIX SODIUM
     Indication: ENDOMETRIOSIS
     Route: 048

REACTIONS (9)
  - Hormone level abnormal [Unknown]
  - Medical device pain [Unknown]
  - Dysmenorrhoea [Unknown]
  - Stress [Unknown]
  - Post procedural complication [Unknown]
  - Frustration tolerance decreased [Unknown]
  - Endometriosis [Unknown]
  - Alopecia [Unknown]
  - Constipation [Unknown]

NARRATIVE: CASE EVENT DATE: 2019
